FAERS Safety Report 5859986-0 (Version None)
Quarter: 2008Q3

REPORT INFORMATION
  Report Type: 
  Country: None (occurrence: None)
  Receive Date: 20080827
  Receipt Date: 20080819
  Transmission Date: 20090109
  Serious: Yes (Other)
  Sender: FDA-Public Use
  Company Number: US-ELI_LILLY_AND_COMPANY-US200808003625

PATIENT
  Sex: Female

DRUGS (5)
  1. BYETTA [Suspect]
     Indication: TYPE 2 DIABETES MELLITUS
     Dosage: 5 UG, 2/D
     Route: 058
     Dates: start: 20070101
  2. BYETTA [Suspect]
     Dosage: 10 UG, 2/D
     Route: 058
     Dates: end: 20080819
  3. INSULIN [Concomitant]
  4. GLIPIZIDE [Concomitant]
     Indication: TYPE 2 DIABETES MELLITUS
     Dosage: 2.5 UG, DAILY (1/D)
     Dates: start: 20070101
  5. VITAMIN TAB [Concomitant]

REACTIONS (6)
  - ABDOMINAL PAIN UPPER [None]
  - BREAST MASS [None]
  - BREAST PAIN [None]
  - CARDIOVASCULAR DISORDER [None]
  - DIARRHOEA [None]
  - SURGERY [None]
